FAERS Safety Report 21270949 (Version 1)
Quarter: 2022Q3

REPORT INFORMATION
  Report Type: Spontaneous
  Country: GB (occurrence: GB)
  Receive Date: 20220830
  Receipt Date: 20220830
  Transmission Date: 20221026
  Serious: Yes (Hospitalization, Other)
  Sender: FDA-Public Use
  Company Number: GB-STRIDES PHARMA UK LTD.-2022SP010726

PATIENT
  Sex: Male

DRUGS (24)
  1. OMEGA-3-ACID ETHYL ESTERS [Suspect]
     Active Substance: OMEGA-3-ACID ETHYL ESTERS
     Indication: Nutritional supplementation
     Dosage: 2000 MILLIGRAM, BID
     Route: 065
  2. VITAMIN D NOS [Suspect]
     Active Substance: VITAMIN D NOS
     Indication: Nutritional supplementation
     Dosage: 150000 INTERNATIONAL UNIT PER DAY
     Route: 065
  3. MENAQUINONE 7 [Suspect]
     Active Substance: MENAQUINONE 7
     Indication: Nutritional supplementation
     Dosage: 100 MICROGRAM PER DAY
     Route: 065
  4. VITAMIN C [Suspect]
     Active Substance: ASCORBIC ACID
     Indication: Nutritional supplementation
     Dosage: UNK, 1 DAY
     Route: 065
  5. FOLIC ACID [Suspect]
     Active Substance: FOLIC ACID
     Indication: Nutritional supplementation
     Dosage: 1000 MICROGRAM PER DAY
     Route: 065
  6. VITAMIN B2 [Suspect]
     Active Substance: RIBOFLAVIN
     Indication: Nutritional supplementation
     Dosage: UNK, PER DAY
     Route: 065
  7. VITAMIN B6 [Suspect]
     Active Substance: PYRIDOXINE HYDROCHLORIDE
     Indication: Nutritional supplementation
     Dosage: UNK, 1 DAY
     Route: 065
  8. SELENIUM [Suspect]
     Active Substance: SELENIUM
     Indication: Nutritional supplementation
     Dosage: UNK, 1 DAY
     Route: 065
  9. ZINC PICOLINATE [Suspect]
     Active Substance: ZINC PICOLINATE
     Indication: Nutritional supplementation
     Dosage: 15 MILLIGRAM PER DAY
     Route: 065
  10. VITAMIN B3 [Suspect]
     Active Substance: NIACIN
     Indication: Nutritional supplementation
     Dosage: 50 MILLIGRAM PER DAY
     Route: 065
  11. IODINE\POTASSIUM IODIDE [Suspect]
     Active Substance: IODINE\POTASSIUM IODIDE
     Indication: Nutritional supplementation
     Dosage: 1 DOSAGE FORM PER DAY
     Route: 065
  12. LYSINE [Suspect]
     Active Substance: LYSINE
     Indication: Nutritional supplementation
     Dosage: 500 MICROGRAM PER DAY
     Route: 065
  13. ACETYLCYSTEINE [Suspect]
     Active Substance: ACETYLCYSTEINE
     Indication: Nutritional supplementation
     Dosage: 600 MILLIGRAM PER DAY
     Route: 065
  14. BROMELAINS\CHYMOTRYPSIN\LIPASE\PANCRELIPASE\PANCRELIPASE AMYLASE\PAPAI [Suspect]
     Active Substance: BROMELAINS\CHYMOTRYPSIN\LIPASE\PANCRELIPASE\PANCRELIPASE AMYLASE\PAPAIN\RUTIN\TRYPSIN
     Indication: Nutritional supplementation
     Dosage: 400 (UNITS UNKNOWN), 1 DAY
     Route: 065
  15. ASTAXANTHIN [Suspect]
     Active Substance: ASTAXANTHIN
     Indication: Nutritional supplementation
     Dosage: 18 MILLIGRAM PER DAY, SOFTGEL
     Route: 065
  16. MAGNESIUM MALATE [Suspect]
     Active Substance: MAGNESIUM MALATE
     Indication: Nutritional supplementation
     Dosage: 1000 MILLIGRAM PER DAY
     Route: 065
  17. MAGNESIUM CITRATE [Suspect]
     Active Substance: MAGNESIUM CITRATE
     Indication: Nutritional supplementation
     Dosage: 1480 MILLIGRAM PER DAY
     Route: 065
  18. TAURINE [Suspect]
     Active Substance: TAURINE
     Indication: Nutritional supplementation
     Dosage: UNK, DOSE: 1-2G, 1 DAY
     Route: 065
  19. GLYCINE [Suspect]
     Active Substance: GLYCINE
     Indication: Nutritional supplementation
     Dosage: 1 GRAM PER DAY
     Route: 065
  20. CHOLINE\INOSITOL [Suspect]
     Active Substance: CHOLINE\INOSITOL
     Indication: Nutritional supplementation
     Dosage: 100 MILLIGRAM PER DAY
     Route: 065
  21. CALCIUM OROTATE [Suspect]
     Active Substance: CALCIUM OROTATE
     Indication: Nutritional supplementation
     Dosage: 1000 MILLIGRAM PER DAY
     Route: 065
  22. GLUCOSAMINE [Suspect]
     Active Substance: GLUCOSAMINE
     Indication: Nutritional supplementation
     Dosage: UNK, PER DAY
     Route: 065
  23. ASCORBIC ACID\CHONDROITIN SULFATE (BOVINE)\GLUCOSAMINE SULFATE\MANGANE [Suspect]
     Active Substance: ASCORBIC ACID\CHONDROITIN SULFATE (BOVINE)\GLUCOSAMINE SULFATE\MANGANESE
     Indication: Nutritional supplementation
     Dosage: UNK, PER DAY
     Route: 065
  24. SODIUM CHLORIDE [Suspect]
     Active Substance: SODIUM CHLORIDE
     Indication: Nutritional supplementation
     Dosage: UNK, 1 DAY
     Route: 065

REACTIONS (4)
  - Hypercalcaemia [Recovered/Resolved]
  - Hypervitaminosis [Not Recovered/Not Resolved]
  - Acute kidney injury [Unknown]
  - Intentional product misuse [Unknown]
